FAERS Safety Report 22096861 (Version 1)
Quarter: 2023Q1

REPORT INFORMATION
  Report Type: Spontaneous
  Country: GB (occurrence: GB)
  Receive Date: 20230315
  Receipt Date: 20230315
  Transmission Date: 20230417
  Serious: Yes (Hospitalization, Other)
  Sender: FDA-Public Use
  Company Number: GB-CELLTRION INC.-2023GB005439

PATIENT

DRUGS (1)
  1. INFLIXIMAB [Suspect]
     Active Substance: INFLIXIMAB
     Indication: Colitis ulcerative
     Dosage: 120 MILLIGRAM, Q2WEEKS
     Route: 058

REACTIONS (4)
  - Colitis ulcerative [Unknown]
  - Bell^s palsy [Unknown]
  - Herpes zoster [Unknown]
  - Intentional dose omission [Unknown]
